FAERS Safety Report 10711853 (Version 3)
Quarter: 2019Q1

REPORT INFORMATION
  Report Type: Spontaneous
  Country: FR (occurrence: FR)
  Receive Date: 20150114
  Receipt Date: 20190207
  Transmission Date: 20190417
  Serious: Yes (Hospitalization, Other)
  Sender: FDA-Public Use
  Company Number: FR-PFIZER INC-2015007933

PATIENT
  Age: 49 Year
  Sex: Female
  Weight: 50 kg

DRUGS (3)
  1. EFFEXOR [Suspect]
     Active Substance: VENLAFAXINE HYDROCHLORIDE
     Dosage: 375 MG (10 TABLETS), SINGLE
     Route: 048
     Dates: start: 20141207, end: 20141207
  2. ALPRAZOLAM. [Suspect]
     Active Substance: ALPRAZOLAM
     Dosage: 1250 MG (50 TABLETS), SINGLE
     Route: 048
     Dates: start: 20141207, end: 20141207
  3. TECFIDERA [Suspect]
     Active Substance: DIMETHYL FUMARATE
     Dosage: 5280 MG (22 TABLETS), SINGLE
     Route: 048
     Dates: start: 20141207, end: 20141207

REACTIONS (6)
  - Coma [Recovered/Resolved]
  - Rash [Recovered/Resolved]
  - Overdose [Recovered/Resolved]
  - Pyramidal tract syndrome [Recovered/Resolved]
  - Flushing [Recovered/Resolved]
  - Mydriasis [Recovered/Resolved]

NARRATIVE: CASE EVENT DATE: 20141207
